FAERS Safety Report 6438952-0 (Version None)
Quarter: 2009Q4

REPORT INFORMATION
  Report Type: 
  Country: None (occurrence: None)
  Receive Date: 20091113
  Receipt Date: 20091102
  Transmission Date: 20100525
  Serious: Yes (Other)
  Sender: FDA-Public Use
  Company Number: PHEH2009US14916

PATIENT
  Sex: Male

DRUGS (1)
  1. EXJADE [Suspect]
     Dosage: 2000 MG DAILY
     Route: 048
     Dates: start: 20091029

REACTIONS (5)
  - FATIGUE [None]
  - LOSS OF CONSCIOUSNESS [None]
  - RED BLOOD CELL COUNT DECREASED [None]
  - VERTIGO [None]
  - VISION BLURRED [None]
